FAERS Safety Report 9983489 (Version 2)
Quarter: 2014Q1

REPORT INFORMATION
  Report Type: Report from Study
  Country: KH (occurrence: KH)
  Receive Date: 20140307
  Receipt Date: 20140307
  Transmission Date: 20141002
  Serious: Yes (Disabling)
  Sender: FDA-Public Use
  Company Number: PHHY2014KH013451

PATIENT
  Age: 32 Year
  Sex: Female
  Weight: 51 kg

DRUGS (3)
  1. GLIVEC [Suspect]
     Indication: CHRONIC MYELOID LEUKAEMIA
     Dosage: 400 MG
     Route: 048
     Dates: start: 20130117
  2. GLIVEC [Suspect]
     Dosage: 300 MG
     Route: 048
     Dates: start: 201305
  3. MULTI-VIT [Concomitant]
     Dosage: 1 DF, DAILY
     Route: 048
     Dates: start: 20121213

REACTIONS (4)
  - Gait disturbance [Recovered/Resolved]
  - Myalgia [Recovered/Resolved]
  - Insomnia [Recovered/Resolved]
  - Arthralgia [Recovered/Resolved]
